FAERS Safety Report 5700896-7 (Version None)
Quarter: 2008Q2

REPORT INFORMATION
  Report Type: 
  Country: None (occurrence: None)
  Receive Date: 20080410
  Receipt Date: 20080404
  Transmission Date: 20081010
  Serious: Yes (Other)
  Sender: FDA-Public Use
  Company Number: A0719389A

PATIENT
  Age: 72 Year
  Sex: Female

DRUGS (4)
  1. FLONASE [Suspect]
     Route: 045
  2. LIPITOR [Concomitant]
  3. LIBRIUM [Concomitant]
  4. FOSAMAX [Concomitant]

REACTIONS (4)
  - EPISTAXIS [None]
  - NASAL ULCER [None]
  - OSTEOPOROSIS [None]
  - SPINAL FRACTURE [None]
